FAERS Safety Report 8732031 (Version 2)
Quarter: 2012Q4

REPORT INFORMATION
  Report Type: 
  Country: US (occurrence: US)
  Receive Date: 20120820
  Receipt Date: 20121022
  Transmission Date: 20130627
  Serious: Yes (Other)
  Sender: FDA-Public Use
  Company Number: US-PFIZER INC-2012198890

PATIENT
  Sex: Male

DRUGS (6)
  1. LYRICA [Suspect]
     Indication: NECK PAIN
     Dosage: 50 mg, 2x/day
     Route: 048
     Dates: start: 201204, end: 201206
  2. LYRICA [Suspect]
     Dosage: 50 mg, 3x/day
     Route: 048
     Dates: start: 201206, end: 201206
  3. LYRICA [Suspect]
     Dosage: 50 mg, 4x/day
     Route: 048
     Dates: start: 201206, end: 201207
  4. LYRICA [Suspect]
     Dosage: 75 mg, 3x/day
     Route: 048
     Dates: start: 201207, end: 20120713
  5. LYRICA [Suspect]
     Dosage: 75 mg, 4x/day
     Route: 048
     Dates: start: 20120713, end: 201208
  6. LYRICA [Suspect]
     Dosage: 50 mg, 3x/day
     Route: 048
     Dates: start: 201208

REACTIONS (2)
  - Dyspnoea [Recovering/Resolving]
  - Visual impairment [Not Recovered/Not Resolved]
